FAERS Safety Report 9355188 (Version 1)
Quarter: 2013Q2

REPORT INFORMATION
  Report Type: Spontaneous
  Country: PH (occurrence: PH)
  Receive Date: 20130619
  Receipt Date: 20130619
  Transmission Date: 20140414
  Serious: Yes (Hospitalization, Other)
  Sender: FDA-Public Use
  Company Number: PHHY2013PH060776

PATIENT
  Age: 71 Year
  Sex: Male
  Weight: 53.64 kg

DRUGS (7)
  1. GLIVEC [Suspect]
     Indication: GASTROINTESTINAL STROMAL TUMOUR
     Dosage: 400 MG, PER DAY
     Route: 048
     Dates: start: 20100720, end: 20130315
  2. GLIVEC [Suspect]
     Dosage: 200 MG, PER DAY
     Route: 048
     Dates: start: 20130516
  3. SODIUM BICARBONATE [Concomitant]
     Indication: RENAL FAILURE CHRONIC
     Dosage: 1 TABLET
     Route: 048
  4. DABIGATRAN [Concomitant]
     Indication: DEEP VEIN THROMBOSIS
     Dosage: 75 MG, QD
     Route: 048
     Dates: start: 20130411
  5. CARVEDILOL [Concomitant]
     Indication: HYPERTENSION
     Dosage: 25 MG, QD
     Route: 048
     Dates: start: 20120202
  6. VERAPAMIL [Concomitant]
     Indication: HYPERTENSION
     Dosage: 240 MG, QD
     Route: 048
     Dates: start: 20130319
  7. CLONIDINE [Concomitant]
     Indication: HYPERTENSION
     Dosage: 150 MG, QD
     Route: 048
     Dates: start: 20100901

REACTIONS (3)
  - Pleural effusion [Recovered/Resolved with Sequelae]
  - Pancreatic neoplasm [Unknown]
  - Aortic dissection [Unknown]
